FAERS Safety Report 5282373-3 (Version None)
Quarter: 2007Q1

REPORT INFORMATION
  Report Type: 
  Country: None (occurrence: None)
  Receive Date: 20070326
  Receipt Date: 20070313
  Transmission Date: 20070707
  Serious: Yes (Death, Hospitalization)
  Sender: FDA-Public Use
  Company Number: GXKR2007DE02514

PATIENT
  Age: 2 Year
  Sex: Male

DRUGS (10)
  1. RIFAMPICIN [Suspect]
     Indication: TUBERCULOSIS
  2. ISONIAZID [Suspect]
     Indication: TUBERCULOSIS
  3. PYRAZINAMIDE [Suspect]
     Indication: TUBERCULOSIS
  4. CIPROFLOXACIN [Suspect]
     Indication: TUBERCULOSIS
  5. CEPHALOSPORINES (NO INGREDIENTS/SUBSTANCES) [Concomitant]
  6. MANNITOL [Concomitant]
  7. FUROSEMIDE [Concomitant]
  8. DEXAMETHASONE TAB [Concomitant]
  9. PHENOBARBITAL TAB [Concomitant]
  10. ACYCLOVIR [Concomitant]

REACTIONS (2)
  - ACUTE HEPATIC FAILURE [None]
  - HEPATIC NECROSIS [None]
